FAERS Safety Report 6816115-4 (Version None)
Quarter: 2010Q3

REPORT INFORMATION
  Report Type: 
  Country: None (occurrence: None)
  Receive Date: 20100702
  Receipt Date: 20100702
  Transmission Date: 20110219
  Serious: Yes (Hospitalization)
  Sender: FDA-Public Use
  Company Number: None

PATIENT
  Sex: Male
  Weight: 78.0187 kg

DRUGS (2)
  1. BENDAMUSTINE 70 MG/ M2 DAY1 AND 2  IV [Suspect]
     Indication: CHRONIC LYMPHOCYTIC LEUKAEMIA
     Dosage: 70 MG/M2 DAY 1 AND 2 IV
     Route: 042
     Dates: start: 20100414, end: 20100527
  2. RITUXAN [Suspect]
     Indication: CHRONIC LYMPHOCYTIC LEUKAEMIA
     Dosage: 375 MG/M2 DAY 1 IV
     Route: 042
     Dates: start: 20100414, end: 20100527

REACTIONS (3)
  - CYTOMEGALOVIRUS TEST POSITIVE [None]
  - FAILURE TO THRIVE [None]
  - PYREXIA [None]
